FAERS Safety Report 4956076-6 (Version None)
Quarter: 2006Q1

REPORT INFORMATION
  Report Type: 
  Country: None (occurrence: None)
  Receive Date: 20060328
  Receipt Date: 20021101
  Transmission Date: 20060701
  Serious: Yes (Other)
  Sender: FDA-Public Use
  Company Number: DE-MERCK-0603USA03556

PATIENT
  Age: 35 Year
  Sex: Female

DRUGS (7)
  1. SUSTIVA [Suspect]
     Indication: HIV INFECTION
     Route: 048
     Dates: start: 20000524
  2. VIDEX [Suspect]
     Indication: HIV INFECTION
     Route: 065
     Dates: start: 20000524
  3. ZERIT [Suspect]
     Indication: HIV INFECTION
     Route: 065
     Dates: start: 19960717
  4. ZIDOVUDINE [Suspect]
     Indication: HIV INFECTION
     Route: 065
     Dates: start: 19951113
  5. LAMIVUDINE [Suspect]
     Indication: HIV INFECTION
     Route: 065
     Dates: start: 19960108
  6. CRIXIVAN [Suspect]
     Indication: HIV INFECTION
     Route: 065
     Dates: start: 19960717
  7. LOPINAVIR AND RITONAVIR [Concomitant]
     Indication: HIV INFECTION
     Route: 065
     Dates: start: 20000531

REACTIONS (13)
  - ALOPECIA [None]
  - ASTHENIA [None]
  - BACK PAIN [None]
  - DERMATITIS ALLERGIC [None]
  - DIARRHOEA [None]
  - DRUG EXPOSURE DURING PREGNANCY [None]
  - ERYTHEMA NODOSUM [None]
  - FATIGUE [None]
  - HEADACHE [None]
  - HERPES VIRUS INFECTION [None]
  - HYPERSENSITIVITY [None]
  - OPPORTUNISTIC INFECTION [None]
  - PNEUMOCYSTIS JIROVECI PNEUMONIA [None]
